FAERS Safety Report 22650703 (Version 1)
Quarter: 2023Q2

REPORT INFORMATION
  Report Type: Report from Study
  Country: BE (occurrence: BE)
  Receive Date: 20230628
  Receipt Date: 20230628
  Transmission Date: 20230722
  Serious: Yes (Hospitalization)
  Sender: FDA-Public Use
  Company Number: BE-GENMAB-2022-01332

PATIENT
  Age: 50 Year
  Sex: Male
  Weight: 103 kg

DRUGS (24)
  1. EPCORITAMAB [Suspect]
     Active Substance: EPCORITAMAB
     Indication: Follicular lymphoma stage III
     Dosage: PRIMING DOSE: 0.16 MILLIGRAM, SINGLE
     Route: 058
     Dates: start: 20220223, end: 20220223
  2. EPCORITAMAB [Suspect]
     Active Substance: EPCORITAMAB
     Dosage: INTERMEDIATE DOSE: 0.8 MILLIGRAM, SINGLE
     Route: 058
     Dates: start: 20220302, end: 20220302
  3. EPCORITAMAB [Suspect]
     Active Substance: EPCORITAMAB
     Dosage: FULL DOSE: 48 MILLIGRAM, WEEKLY
     Route: 058
     Dates: start: 20220310, end: 20220324
  4. EPCORITAMAB [Suspect]
     Active Substance: EPCORITAMAB
     Dosage: FULL DOSE: 48 MILLIGRAM, 1Q8W
     Route: 058
     Dates: start: 20220331
  5. ZYRTEC [Concomitant]
     Active Substance: CETIRIZINE HYDROCHLORIDE
     Indication: Premedication
     Dosage: 10 MILLIGRAM, SINGLE
     Route: 048
     Dates: start: 20220819, end: 20220819
  6. ZYRTEC [Concomitant]
     Active Substance: CETIRIZINE HYDROCHLORIDE
     Dosage: 10 MILLIGRAM, SINGLE
     Route: 048
     Dates: start: 20221031, end: 20221031
  7. ACETAMINOPHEN [Concomitant]
     Active Substance: ACETAMINOPHEN
     Indication: Premedication
     Dosage: 1 GRAM, SINGLE
     Route: 048
     Dates: start: 20220819, end: 20220819
  8. ACETAMINOPHEN [Concomitant]
     Active Substance: ACETAMINOPHEN
     Dosage: 1 GRAM, SINGLE
     Route: 048
     Dates: start: 20221031, end: 20221031
  9. ACYCLOVIR [Concomitant]
     Active Substance: ACYCLOVIR
     Indication: Prophylaxis
     Dosage: 800 MILLIGRAM, QD
     Route: 048
     Dates: start: 20220603
  10. ALLOPURINOL [Concomitant]
     Active Substance: ALLOPURINOL
     Indication: Prophylaxis
     Dosage: 300 MILLIGRAM, QD
     Route: 048
     Dates: start: 20220604, end: 20221114
  11. D VITAL FORTE [Concomitant]
     Indication: Supplementation therapy
     Dosage: 1 DOSAGE FORM (SACHET), QD
     Route: 048
     Dates: start: 20220604, end: 20230411
  12. NIQUITIN [Concomitant]
     Active Substance: NICOTINE
     Indication: Supplementation therapy
     Dosage: 21 MILLIGRAM, QD
     Route: 062
     Dates: start: 20220602
  13. OMEPRAZOLE [Concomitant]
     Active Substance: OMEPRAZOLE
     Indication: Prophylaxis
     Dosage: 40 MILLIGRAM, QD
     Route: 048
     Dates: start: 20201201
  14. ZOLPIDEM TARTRATE [Concomitant]
     Active Substance: ZOLPIDEM TARTRATE
     Dosage: 5 MILLIGRAM, QD
     Route: 048
     Dates: start: 20220603
  15. PRIVIGEN [Concomitant]
     Active Substance: HUMAN IMMUNOGLOBULIN G
     Indication: Hypogammaglobulinaemia
     Dosage: 45 GRAM, SINGLE
     Route: 042
     Dates: start: 20221114, end: 20221114
  16. PRIVIGEN [Concomitant]
     Active Substance: HUMAN IMMUNOGLOBULIN G
     Dosage: 40 GRAM, SINGLE
     Route: 042
     Dates: start: 20221125, end: 20221125
  17. PRIVIGEN [Concomitant]
     Active Substance: HUMAN IMMUNOGLOBULIN G
     Dosage: 20 GRAM, SINGLE
     Route: 042
     Dates: start: 20221126, end: 20221126
  18. AUGMENTIN [Concomitant]
     Active Substance: AMOXICILLIN\CLAVULANATE POTASSIUM
     Indication: Upper respiratory tract infection
     Dosage: 875 MILLIGRAM, TID
     Route: 048
     Dates: start: 20221010, end: 20221024
  19. EVUSHELD [Concomitant]
     Active Substance: CILGAVIMAB\TIXAGEVIMAB
     Indication: Prophylaxis
     Dosage: 300 MILLIGRAM, SINGLE
     Route: 030
     Dates: start: 20221117, end: 20221117
  20. BECLOMETHASONE DIPROPIONATE\FORMOTEROL FUMARATE [Concomitant]
     Active Substance: BECLOMETHASONE DIPROPIONATE\FORMOTEROL FUMARATE
     Indication: Upper respiratory tract infection
     Dosage: 1 INHALATION, BID
     Dates: start: 20221114, end: 20230411
  21. NICORETTE [Concomitant]
     Active Substance: NICOTINE
     Indication: Product substitution
     Dosage: 1 DOSAGE FORM (1 UNIT), PRN
     Route: 048
     Dates: start: 20221114
  22. PAXLOVID [Concomitant]
     Active Substance: NIRMATRELVIR\RITONAVIR
     Indication: COVID-19
     Dosage: 300 MILLIGRAM, BID
     Route: 048
     Dates: start: 20221011, end: 20221016
  23. ACETAMINOPHEN [Concomitant]
     Active Substance: ACETAMINOPHEN
     Indication: Premedication
     Dosage: 1 GRAM, SINGLE
     Route: 048
     Dates: start: 20221126, end: 20221126
  24. STEOVIT FORTE [Concomitant]
     Indication: Supplementation therapy
     Dosage: 1 DOSAGE FORM, QD
     Route: 048
     Dates: start: 20220427

REACTIONS (1)
  - Pneumonia cytomegaloviral [Recovered/Resolved]

NARRATIVE: CASE EVENT DATE: 20221104
